FAERS Safety Report 5259720-1 (Version None)
Quarter: 2007Q1

REPORT INFORMATION
  Report Type: 
  Country: None (occurrence: None)
  Receive Date: 20070309
  Receipt Date: 20070306
  Transmission Date: 20070707
  Serious: Yes (Hospitalization)
  Sender: FDA-Public Use
  Company Number: DE-BAYER-200710304BVD

PATIENT
  Age: 87 Year
  Sex: Female

DRUGS (6)
  1. AVELOX [Suspect]
     Indication: CHOLECYSTITIS ACUTE
     Route: 042
     Dates: start: 20070101
  2. AVELOX [Suspect]
     Route: 048
     Dates: start: 20070101
  3. THEOPHYLLINE [Concomitant]
  4. LANITOP [Concomitant]
  5. SPIRO [Concomitant]
  6. TROMCARDIN FORTE [Concomitant]

REACTIONS (1)
  - PNEUMONIA [None]
